FAERS Safety Report 5714629-1 (Version None)
Quarter: 2008Q2

REPORT INFORMATION
  Report Type: 
  Country: None (occurrence: None)
  Receive Date: 20080423
  Receipt Date: 20080422
  Transmission Date: 20081010
  Serious: Yes (Hospitalization, Disabling)
  Sender: FDA-Public Use
  Company Number: B0517589A

PATIENT
  Age: 83 Year
  Sex: Female
  Weight: 40 kg

DRUGS (2)
  1. ARIXTRA [Suspect]
     Indication: THROMBOSIS PROPHYLAXIS
     Dosage: 2.5MG PER DAY
     Route: 058
     Dates: start: 20070929, end: 20071003
  2. WARFARIN SODIUM [Suspect]
     Indication: THROMBOSIS PROPHYLAXIS
     Dosage: 3MG PER DAY
     Route: 048
     Dates: start: 20070929, end: 20071003

REACTIONS (7)
  - BLOOD PRESSURE DECREASED [None]
  - EMBOLISM [None]
  - OXYGEN SATURATION DECREASED [None]
  - POSTOPERATIVE WOUND COMPLICATION [None]
  - SCIATIC NERVE PALSY [None]
  - SHOCK HAEMORRHAGIC [None]
  - WOUND HAEMORRHAGE [None]
